FAERS Safety Report 15658666 (Version 2)
Quarter: 2019Q1

REPORT INFORMATION
  Report Type: Report from Study
  Country: CA (occurrence: CA)
  Receive Date: 20181126
  Receipt Date: 20190115
  Transmission Date: 20190417
  Serious: Yes (Other)
  Sender: FDA-Public Use
  Company Number: CA-HLSUS-2018-CA-001768

PATIENT
  Age: 61 Year
  Sex: Female

DRUGS (2)
  1. TRAMODOL [Concomitant]
     Active Substance: TRAMADOL
     Route: 048
  2. CLOZARIL [Suspect]
     Active Substance: CLOZAPINE
     Route: 048
     Dates: start: 20180503

REACTIONS (3)
  - Neutrophilia [Unknown]
  - Pneumonia [Unknown]
  - Leukocytosis [Unknown]

NARRATIVE: CASE EVENT DATE: 20181119
